FAERS Safety Report 25613018 (Version 1)
Quarter: 2025Q3

REPORT INFORMATION
  Report Type: Spontaneous
  Country: US (occurrence: US)
  Receive Date: 20250728
  Receipt Date: 20250728
  Transmission Date: 20251021
  Serious: Yes (Other)
  Sender: MYLAN
  Company Number: US-MYLANLABS-2025M1062699

PATIENT
  Age: 27 Year
  Sex: Female

DRUGS (10)
  1. VALACYCLOVIR HYDROCHLORIDE [Suspect]
     Active Substance: VALACYCLOVIR HYDROCHLORIDE
     Indication: Herpes simplex
     Dosage: 500 MILLIGRAM, QD
  2. VALACYCLOVIR HYDROCHLORIDE [Suspect]
     Active Substance: VALACYCLOVIR HYDROCHLORIDE
     Indication: Erythema multiforme
     Dosage: 1 GRAM, QD
  3. CYCLOSPORINE [Suspect]
     Active Substance: CYCLOSPORINE
     Indication: Herpes simplex
  4. CYCLOSPORINE [Suspect]
     Active Substance: CYCLOSPORINE
     Indication: Erythema multiforme
  5. DAPSONE [Suspect]
     Active Substance: DAPSONE
     Indication: Herpes simplex
  6. DAPSONE [Suspect]
     Active Substance: DAPSONE
     Indication: Erythema multiforme
  7. MYCOPHENOLATE MOFETIL [Suspect]
     Active Substance: MYCOPHENOLATE MOFETIL
     Indication: Herpes simplex
     Dosage: 1 GRAM, BID
  8. MYCOPHENOLATE MOFETIL [Suspect]
     Active Substance: MYCOPHENOLATE MOFETIL
     Indication: Erythema multiforme
  9. CLOBETASOL [Suspect]
     Active Substance: CLOBETASOL
     Indication: Herpes simplex
  10. CLOBETASOL [Suspect]
     Active Substance: CLOBETASOL
     Indication: Erythema multiforme

REACTIONS (2)
  - Drug ineffective [Unknown]
  - Off label use [Unknown]
